FAERS Safety Report 6662505-2 (Version None)
Quarter: 2010Q1

REPORT INFORMATION
  Report Type: 
  Country: None (occurrence: None)
  Receive Date: 20100329
  Receipt Date: 20100316
  Transmission Date: 20100710
  Serious: Yes (Other)
  Sender: FDA-Public Use
  Company Number: RB-18526-2009

PATIENT
  Age: 24 Year
  Sex: Female

DRUGS (2)
  1. SUBOXONE [Suspect]
     Indication: DRUG DEPENDENCE
     Dosage: 28 SUBLINGUAL, PATIENT REMAINS ON SUBOXONE
     Route: 060
     Dates: start: 20081101, end: 20090428
  2. SUBUTEX [Suspect]
     Indication: DRUG DEPENDENCE
     Dosage: 28 MG SUBLINGUAL
     Route: 060

REACTIONS (5)
  - DRUG EXPOSURE DURING PREGNANCY [None]
  - NAUSEA [None]
  - PLACENTAL INSUFFICIENCY [None]
  - PREGNANCY [None]
  - PREMATURE LABOUR [None]
